FAERS Safety Report 13926161 (Version 1)
Quarter: 2017Q3

REPORT INFORMATION
  Report Type: Spontaneous
  Country: CN (occurrence: CN)
  Receive Date: 20170831
  Receipt Date: 20170831
  Transmission Date: 20171127
  Serious: Yes (Hospitalization)
  Sender: FDA-Public Use
  Company Number: CN-FRESENIUS KABI-FK201707307

PATIENT
  Age: 62 Year
  Sex: Female

DRUGS (2)
  1. ETOPOSIDE (MANUFACTURER UNKNOWN) [Suspect]
     Active Substance: ETOPOSIDE
     Indication: SMALL CELL LUNG CANCER
     Route: 042
  2. LOBAPLATIN [Suspect]
     Active Substance: LOBAPLATIN
     Indication: SMALL CELL LUNG CANCER
     Route: 042

REACTIONS (1)
  - Pancreatitis acute [Unknown]
